FAERS Safety Report 19272903 (Version 1)
Quarter: 2021Q2

REPORT INFORMATION
  Report Type: Report from Study
  Country: US (occurrence: US)
  Receive Date: 20210518
  Receipt Date: 20210518
  Transmission Date: 20210717
  Serious: Yes (Life-Threatening, Other)
  Sender: FDA-Public Use
  Company Number: US-BEH-2021131762

PATIENT
  Age: 26 Year
  Sex: Male
  Weight: 45.35 kg

DRUGS (1)
  1. HIZENTRA [Suspect]
     Active Substance: HUMAN IMMUNOGLOBULIN G
     Dosage: UNK
     Route: 058
     Dates: end: 202105

REACTIONS (4)
  - Blood immunoglobulin G decreased [Not Recovered/Not Resolved]
  - Paediatric autoimmune neuropsychiatric disorders associated with streptococcal infection [Not Recovered/Not Resolved]
  - Brain oedema [Not Recovered/Not Resolved]
  - Insomnia [Not Recovered/Not Resolved]

NARRATIVE: CASE EVENT DATE: 20210501
